FAERS Safety Report 8222173-5 (Version None)
Quarter: 2012Q1

REPORT INFORMATION
  Report Type: 
  Country: None (occurrence: None)
  Receive Date: 20120320
  Receipt Date: 20120312
  Transmission Date: 20120608
  Serious: Yes (Other)
  Sender: FDA-Public Use
  Company Number: US-JNJFOC-20120211028

PATIENT
  Sex: Female
  Weight: 104.78 kg

DRUGS (6)
  1. REMICADE [Suspect]
     Indication: SPONDYLITIS
     Dosage: 8 VIALS
     Route: 042
  2. REMICADE [Suspect]
     Indication: CROHN'S DISEASE
     Dosage: 8 VIALS
     Route: 042
  3. REMICADE [Suspect]
     Dosage: 6 VIALS
     Route: 042
     Dates: start: 20111027
  4. METHOTREXATE [Concomitant]
     Indication: ARTHRITIS
     Route: 058
     Dates: start: 20110101
  5. ACYCLOVIR [Suspect]
     Indication: MOUTH ULCERATION
     Route: 065
  6. REMICADE [Suspect]
     Dosage: 6 VIALS
     Route: 042
     Dates: start: 20111027

REACTIONS (9)
  - PULMONARY OEDEMA [None]
  - VIRAL INFECTION [None]
  - STRESS [None]
  - MOUTH ULCERATION [None]
  - APHONIA [None]
  - ADVERSE DRUG REACTION [None]
  - BACK PAIN [None]
  - ARTHRALGIA [None]
  - MALAISE [None]
